FAERS Safety Report 4682038-2 (Version None)
Quarter: 2005Q2

REPORT INFORMATION
  Report Type: 
  Country: None (occurrence: None)
  Receive Date: 20050602
  Receipt Date: 20050523
  Transmission Date: 20051028
  Serious: Yes (Hospitalization)
  Sender: FDA-Public Use
  Company Number: SGB1-2005-00232

PATIENT
  Age: 68 Year
  Sex: Male

DRUGS (1)
  1. LANTHANUM CARBONATE (LANTHANUM CARBONATE) TABLET CHEWABLE [Suspect]
     Indication: HYPERPHOSPHATAEMIA
     Dosage: ORAL
     Route: 048

REACTIONS (1)
  - VITREOUS HAEMORRHAGE [None]
